FAERS Safety Report 7342098-7 (Version None)
Quarter: 2011Q1

REPORT INFORMATION
  Report Type: 
  Country: None (occurrence: None)
  Receive Date: 20110309
  Receipt Date: 20110228
  Transmission Date: 20110831
  Serious: Yes (Other)
  Sender: FDA-Public Use
  Company Number: US-RB-022965-11

PATIENT
  Age: 48 Year
  Sex: Female

DRUGS (1)
  1. SUBOXONE [Suspect]
     Indication: DRUG DEPENDENCE
     Dosage: SUBLINGUAL FILM - 4 MG EVERY 6 HOURS
     Route: 060
     Dates: start: 20110221

REACTIONS (8)
  - VISUAL IMPAIRMENT [None]
  - FEELING ABNORMAL [None]
  - CONFUSIONAL STATE [None]
  - DIZZINESS [None]
  - NAUSEA [None]
  - MALAISE [None]
  - OFF LABEL USE [None]
  - HALLUCINATION, VISUAL [None]
